FAERS Safety Report 16714024 (Version 1)
Quarter: 2019Q3

REPORT INFORMATION
  Report Type: Spontaneous
  Country: CO (occurrence: CO)
  Receive Date: 20190819
  Receipt Date: 20190819
  Transmission Date: 20191004
  Serious: Yes (Other)
  Sender: FDA-Public Use
  Company Number: CO-VIIV HEALTHCARE LIMITED-CO2019AMR146394

PATIENT
  Sex: Male

DRUGS (1)
  1. TRIUMEQ [Suspect]
     Active Substance: ABACAVIR SULFATE\DOLUTEGRAVIR SODIUM\LAMIVUDINE
     Indication: HIV INFECTION
     Dosage: UNK, 1 TABLET 600/300/50 DAY
     Route: 048
     Dates: start: 20180731

REACTIONS (2)
  - Blood HIV RNA increased [Not Recovered/Not Resolved]
  - Virologic failure [Not Recovered/Not Resolved]
